FAERS Safety Report 6125372-1 (Version None)
Quarter: 2009Q1

REPORT INFORMATION
  Report Type: 
  Country: None (occurrence: None)
  Receive Date: 20090319
  Receipt Date: 20090319
  Transmission Date: 20090719
  Serious: Yes (Other)
  Sender: FDA-Public Use
  Company Number: None

PATIENT
  Sex: Female
  Weight: 65.7716 kg

DRUGS (1)
  1. BUTORPHANOL TARTRATE [Suspect]
     Indication: PAIN
     Dosage: 2MG ONE DOSE IV
     Route: 042
     Dates: start: 20090224

REACTIONS (3)
  - AGITATION [None]
  - DRUG EXPOSURE DURING PREGNANCY [None]
  - PRURITUS [None]
